FAERS Safety Report 15537633 (Version 9)
Quarter: 2019Q2

REPORT INFORMATION
  Report Type: Report from Study
  Country: IT (occurrence: IT)
  Receive Date: 20181022
  Receipt Date: 20190412
  Transmission Date: 20190711
  Serious: Yes (Hospitalization)
  Sender: FDA-Public Use
  Company Number: IT-CELGENEUS-ITA-20180905862

PATIENT
  Age: 83 Year
  Sex: Female
  Weight: 53 kg

DRUGS (47)
  1. AZACITIDINE INJECTABLE [Suspect]
     Active Substance: AZACITIDINE
     Dosage: 75 MILLIGRAM/SQ. METER
     Route: 058
     Dates: start: 20180820, end: 20180828
  2. METOCLOPRAMIDE. [Concomitant]
     Active Substance: METOCLOPRAMIDE
     Indication: NAUSEA
     Route: 041
     Dates: start: 20180821, end: 20180821
  3. KCL [Concomitant]
     Active Substance: POTASSIUM CHLORIDE
     Indication: HYPOKALAEMIA
     Dosage: 4800 MILLIGRAM
     Route: 048
     Dates: start: 20180916, end: 20180916
  4. PANTOPRAZOLE [Concomitant]
     Active Substance: PANTOPRAZOLE
     Indication: GASTRITIS PROPHYLAXIS
     Dosage: 20 MILLIGRAM
     Route: 048
     Dates: start: 20180808, end: 20180819
  5. PANTOPRAZOLE [Concomitant]
     Active Substance: PANTOPRAZOLE
     Dosage: 40 MILLIGRAM
     Route: 048
     Dates: start: 20180820
  6. KYTRIL [Concomitant]
     Active Substance: GRANISETRON HYDROCHLORIDE
     Route: 041
     Dates: start: 20180928, end: 20180928
  7. AZACITIDINE INJECTABLE [Suspect]
     Active Substance: AZACITIDINE
     Dosage: 75 MILLIGRAM/SQ. METER
     Route: 058
     Dates: start: 20180924, end: 20181002
  8. AZACITIDINE INJECTABLE [Suspect]
     Active Substance: AZACITIDINE
     Dosage: 75 MILLIGRAM/SQ. METER
     Route: 058
     Dates: start: 20181112
  9. KCL [Concomitant]
     Active Substance: POTASSIUM CHLORIDE
     Dosage: 4800 MILLIGRAM
     Route: 048
     Dates: start: 20180919, end: 20181013
  10. MAGNESIUM HYDROXIDE/ ALUMINIUM HYDROXIDE [Concomitant]
     Indication: DYSPEPSIA
     Dosage: 1 TABLESPOON
     Route: 048
     Dates: start: 20180820, end: 20180907
  11. FLURBIPROFENE [Concomitant]
     Active Substance: FLURBIPROFEN
     Indication: OROPHARYNGEAL PAIN
     Dosage: 1 MILLIGRAM
     Route: 061
     Dates: start: 20180817, end: 20180907
  12. RBC [Concomitant]
     Active Substance: HUMAN RED BLOOD CELL
     Indication: HAEMOGLOBIN DECREASED
     Dosage: 1 UNIT
     Route: 065
     Dates: start: 20180915
  13. RBC [Concomitant]
     Active Substance: HUMAN RED BLOOD CELL
     Dosage: 1 UNIT
     Route: 065
     Dates: start: 20180916
  14. AZACITIDINE INJECTABLE [Suspect]
     Active Substance: AZACITIDINE
     Indication: ACUTE MYELOID LEUKAEMIA
     Dosage: 75 MILLIGRAM/SQ. METER
     Route: 058
     Dates: start: 20180724, end: 20180801
  15. CETIRIZINE HYDROCHLORIDE. [Concomitant]
     Active Substance: CETIRIZINE HYDROCHLORIDE
     Indication: DIFFERENTIATION SYNDROME
     Dosage: 10 MILLIGRAM
     Route: 048
     Dates: start: 20180820, end: 20180827
  16. PARACETAMOL [Concomitant]
     Active Substance: ACETAMINOPHEN
     Indication: PAIN
     Dosage: 1 GRAM
     Route: 041
     Dates: start: 20180914, end: 20180914
  17. EOSIN [Concomitant]
     Indication: VULVAL ULCERATION
     Dosage: 1 APPLICATION
     Route: 061
     Dates: start: 20181026, end: 20181103
  18. AG-221 [Suspect]
     Active Substance: ENASIDENIB
     Dosage: 100 MILLIGRAM
     Route: 048
     Dates: start: 20180914, end: 20181016
  19. PARACETAMOL [Concomitant]
     Active Substance: ACETAMINOPHEN
     Indication: PYREXIA
     Route: 048
     Dates: start: 20180817, end: 20180817
  20. AG-221 [Suspect]
     Active Substance: ENASIDENIB
     Indication: ACUTE MYELOID LEUKAEMIA
     Dosage: 100 MILLIGRAM
     Route: 048
     Dates: start: 20180724, end: 20180912
  21. METFORMINE [Concomitant]
     Active Substance: METFORMIN HYDROCHLORIDE
     Indication: TYPE 2 DIABETES MELLITUS
     Dosage: 1000 MILLIGRAM
     Route: 048
     Dates: start: 201805, end: 20181030
  22. METOCLOPRAMIDE. [Concomitant]
     Active Substance: METOCLOPRAMIDE
     Route: 041
     Dates: start: 20180925, end: 20180925
  23. KCL [Concomitant]
     Active Substance: POTASSIUM CHLORIDE
     Route: 041
     Dates: start: 20180919, end: 20180919
  24. DELTACORTENE [Concomitant]
     Active Substance: PREDNISONE
     Indication: DIFFERENTIATION SYNDROME
     Dosage: 25 MILLIGRAM
     Route: 048
     Dates: start: 20180820, end: 20180907
  25. FLUCONAZOLE. [Concomitant]
     Active Substance: FLUCONAZOLE
     Dosage: 400 MILLIGRAM
     Route: 048
     Dates: start: 20180919, end: 20181014
  26. VORICONAZOLE. [Concomitant]
     Active Substance: VORICONAZOLE
     Indication: ANTIFUNGAL PROPHYLAXIS
     Dosage: 800 MILLIGRAM
     Route: 048
     Dates: start: 20180914, end: 20180916
  27. ECONAZOLE. [Concomitant]
     Active Substance: ECONAZOLE NITRATE
     Indication: VULVAL ULCERATION
     Dosage: 1 APPLICATION
     Route: 061
     Dates: start: 20181026
  28. LORAZEPAM. [Concomitant]
     Active Substance: LORAZEPAM
     Indication: MIXED ANXIETY AND DEPRESSIVE DISORDER
     Dosage: 2.5 MILLIGRAM
     Route: 048
     Dates: start: 1978
  29. KCL [Concomitant]
     Active Substance: POTASSIUM CHLORIDE
     Indication: PROPHYLAXIS
     Dosage: 4800 MILLIGRAM
     Route: 048
     Dates: start: 20180815, end: 20180911
  30. MYCOSTATIN [Concomitant]
     Active Substance: NYSTATIN
     Indication: PROPHYLAXIS
     Dosage: 6 MILLILITER
     Route: 061
     Dates: start: 20180820
  31. BENZALKONIUM CHLORIDE/TANNIC ACID [Concomitant]
     Indication: EPISTAXIS
     Dosage: 1/20 MG
     Route: 061
     Dates: start: 20181105, end: 20181113
  32. ENOXAPARIN [Concomitant]
     Active Substance: ENOXAPARIN
     Indication: DEEP VEIN THROMBOSIS
     Dosage: 8000 IU (INTERNATIONAL UNIT)
     Route: 058
     Dates: start: 20181029, end: 20190205
  33. KYTRIL [Concomitant]
     Active Substance: GRANISETRON HYDROCHLORIDE
     Indication: PROPHYLAXIS OF NAUSEA AND VOMITING
     Route: 041
     Dates: start: 20180925, end: 20180925
  34. DEXAMETHASONE. [Concomitant]
     Active Substance: DEXAMETHASONE
     Indication: NAUSEA
     Dosage: 4 MILLIGRAM
     Route: 048
     Dates: start: 20180722, end: 20181107
  35. TAZOCIN [Concomitant]
     Active Substance: PIPERACILLIN SODIUM\TAZOBACTAM SODIUM
     Indication: FEBRILE NEUTROPENIA
     Dosage: 12/1.5 G
     Route: 041
     Dates: start: 20180731, end: 20180807
  36. TAZOCIN [Concomitant]
     Active Substance: PIPERACILLIN SODIUM\TAZOBACTAM SODIUM
     Route: 041
     Dates: start: 20181015, end: 2018
  37. METOCLOPRAMIDE. [Concomitant]
     Active Substance: METOCLOPRAMIDE
     Indication: VOMITING
     Dosage: 10 MILLIGRAM
     Route: 041
     Dates: start: 20180823, end: 20180824
  38. KCL [Concomitant]
     Active Substance: POTASSIUM CHLORIDE
     Dosage: 40 MILLIEQUIVALENTS
     Route: 048
     Dates: start: 20180924, end: 20180924
  39. CETIRIZINE HYDROCHLORIDE. [Concomitant]
     Active Substance: CETIRIZINE HYDROCHLORIDE
     Dosage: 10 MILLIGRAM
     Route: 048
     Dates: start: 20180911, end: 20180916
  40. FLUCONAZOLE. [Concomitant]
     Active Substance: FLUCONAZOLE
     Indication: ANTIFUNGAL PROPHYLAXIS
     Dosage: 400 MILLIGRAM
     Route: 041
     Dates: start: 20180911, end: 20180914
  41. AZITHROMCYCIN [Concomitant]
     Indication: ANTIBIOTIC PROPHYLAXIS
     Dosage: 800 MILLIGRAM
     Route: 048
     Dates: start: 20180919, end: 20180924
  42. GENTAMICINE/BETAMETHASONE [Concomitant]
     Indication: VULVAL ULCERATION
     Dosage: 1 APPLICATION
     Route: 061
     Dates: start: 20181026
  43. KCL [Concomitant]
     Active Substance: POTASSIUM CHLORIDE
     Dosage: 3600 MILLIGRAM
     Route: 048
     Dates: start: 20181112, end: 20181209
  44. KCL [Concomitant]
     Active Substance: POTASSIUM CHLORIDE
     Route: 041
     Dates: start: 20180928, end: 20180928
  45. KCL [Concomitant]
     Active Substance: POTASSIUM CHLORIDE
     Dosage: 2400 MILLIGRAM
     Route: 048
     Dates: start: 20181210
  46. CEFIXIMA [Concomitant]
     Active Substance: CEFIXIME
     Indication: INFECTION PROPHYLAXIS
     Dosage: 400 MILLIGRAM
     Route: 048
     Dates: start: 20180808, end: 20180817
  47. FLUOCINOLONE ACETONIDE. [Concomitant]
     Active Substance: FLUOCINOLONE ACETONIDE
     Indication: DIFFERENTIATION SYNDROME
     Dosage: 1 APPLICATION
     Route: 061
     Dates: start: 20180820, end: 20180827

REACTIONS (3)
  - Febrile neutropenia [Recovered/Resolved]
  - Deep vein thrombosis [Recovered/Resolved]
  - Pneumonia [Recovered/Resolved]

NARRATIVE: CASE EVENT DATE: 20180911
